FAERS Safety Report 17751257 (Version 3)
Quarter: 2020Q2

REPORT INFORMATION
  Report Type: Report from Study
  Country: CN (occurrence: CN)
  Receive Date: 20200506
  Receipt Date: 20200601
  Transmission Date: 20200714
  Serious: Yes (Hospitalization)
  Sender: FDA-Public Use
  Company Number: CN-KARYOPHARM THERAPEUTICS, INC.-2020KPT000498

PATIENT
  Age: 53 Year
  Sex: Male

DRUGS (1)
  1. SELINEXOR [Suspect]
     Active Substance: SELINEXOR
     Indication: DIFFUSE LARGE B-CELL LYMPHOMA
     Dosage: 60 MG, 2X/WEEK
     Route: 048
     Dates: start: 20200410, end: 20200425

REACTIONS (1)
  - Spinal cord compression [Not Recovered/Not Resolved]

NARRATIVE: CASE EVENT DATE: 20200424
